FAERS Safety Report 8425578-2 (Version None)
Quarter: 2012Q2

REPORT INFORMATION
  Report Type: 
  Country: None (occurrence: None)
  Receive Date: 20120605
  Receipt Date: 20120605
  Transmission Date: 20120825
  Serious: Yes (Other)
  Sender: FDA-Public Use
  Company Number: None

PATIENT
  Age: 25 Year
  Sex: Female
  Weight: 68.0396 kg

DRUGS (5)
  1. LORATADINE [Concomitant]
  2. HYDROCODONE BITARTRATE + ACETAMINOPHEN [Suspect]
     Indication: PYREXIA
     Dosage: TAKE 2 TABLETS EVERY 5 TO 6 HOURS ORALLY
     Route: 048
     Dates: start: 20120510, end: 20120514
  3. HYDROCODONE BITARTRATE + ACETAMINOPHEN [Suspect]
     Indication: PAIN
     Dosage: TAKE 2 TABLETS EVERY 5 TO 6 HOURS ORALLY
     Route: 048
     Dates: start: 20120510, end: 20120514
  4. METFORMIN HCL [Concomitant]
  5. LISINOPRIL AND HYDROCHLOROTHIAZIDE [Concomitant]

REACTIONS (5)
  - MALAISE [None]
  - THINKING ABNORMAL [None]
  - FEELING ABNORMAL [None]
  - DYSKINESIA [None]
  - SOMNOLENCE [None]
